FAERS Safety Report 4953712-5 (Version None)
Quarter: 2006Q1

REPORT INFORMATION
  Report Type: 
  Country: None (occurrence: None)
  Receive Date: 20060327
  Receipt Date: 20060315
  Transmission Date: 20060701
  Serious: Yes (Other)
  Sender: FDA-Public Use
  Company Number: US-JNJFOC-20060305414

PATIENT
  Age: 45 Year
  Sex: Female

DRUGS (4)
  1. REOPRO [Suspect]
     Indication: DRUG USE FOR UNKNOWN INDICATION
  2. HEPARIN [Concomitant]
  3. ASPRIN [Concomitant]
  4. PLAVIX [Concomitant]

REACTIONS (2)
  - RENAL FAILURE [None]
  - RENAL HAEMATOMA [None]
